FAERS Safety Report 25750862 (Version 1)
Quarter: 2025Q3

REPORT INFORMATION
  Report Type: Spontaneous
  Country: US (occurrence: None)
  Receive Date: 20250829
  Receipt Date: 20250829
  Transmission Date: 20251021
  Serious: Yes (Death)
  Sender: FDA-CTU
  Company Number: None

PATIENT
  Age: 74 Year
  Sex: Female

DRUGS (10)
  1. AMIODARONE [Suspect]
     Active Substance: AMIODARONE
     Dates: start: 20250715, end: 20250823
  2. ATORVASTATIN [Suspect]
     Active Substance: ATORVASTATIN
  3. CARVEDILOL [Suspect]
     Active Substance: CARVEDILOL
     Dates: start: 20240208, end: 20250823
  4. CREON [Suspect]
     Active Substance: PANCRELIPASE AMYLASE\PANCRELIPASE LIPASE\PANCRELIPASE PROTEASE
     Dates: start: 20250417, end: 20250823
  5. FAMOTIDINE [Suspect]
     Active Substance: FAMOTIDINE
     Dates: start: 20230630, end: 20250823
  6. FUROSEMIDE [Suspect]
     Active Substance: FUROSEMIDE
     Dates: start: 20250210, end: 20250823
  7. HUMALOG KWIKPEN [Suspect]
     Active Substance: INSULIN LISPRO
     Dates: start: 20240430, end: 20250823
  8. LOSARTAN [Suspect]
     Active Substance: LOSARTAN
     Dates: start: 20240621, end: 20250823
  9. MYCOPHENOLIC ACID [Suspect]
     Active Substance: MYCOPHENOLIC ACID
     Dates: start: 20230901, end: 20250823
  10. PREDNISONE [Suspect]
     Active Substance: PREDNISONE
     Dates: start: 20230901, end: 20250823

REACTIONS (1)
  - Cardiac arrest [None]

NARRATIVE: CASE EVENT DATE: 20250823
